FAERS Safety Report 21713098 (Version 1)
Quarter: 2022Q4

REPORT INFORMATION
  Report Type: Spontaneous
  Country: US (occurrence: US)
  Receive Date: 20221212
  Receipt Date: 20221212
  Transmission Date: 20230112
  Serious: Yes (Other)
  Sender: FDA-Public Use
  Company Number: US-BAYER-2022A166657

PATIENT
  Age: 42 Year
  Sex: Female

DRUGS (1)
  1. MIRENA [Suspect]
     Active Substance: LEVONORGESTREL
     Dosage: 20?G/DAY
     Route: 015
     Dates: start: 2016

REACTIONS (4)
  - Embedded device [Not Recovered/Not Resolved]
  - Device breakage [None]
  - Genital haemorrhage [None]
  - Complication of device removal [None]

NARRATIVE: CASE EVENT DATE: 20221201
